FAERS Safety Report 10166846 (Version 1)
Quarter: 2014Q2

REPORT INFORMATION
  Report Type: Spontaneous
  Country: GB (occurrence: None)
  Receive Date: 20140508
  Receipt Date: 20140508
  Transmission Date: 20141212
  Serious: Yes (Other)
  Sender: FDA-Public Use
  Company Number: AUR-APL-2014-05287

PATIENT
  Age: 32 Year
  Sex: Female
  Weight: 81.64 kg

DRUGS (6)
  1. LAMOTRIGINE [Suspect]
     Indication: PRODUCT USED FOR UNKNOWN INDICATION
     Dates: start: 20140310
  2. EPILIM (VALPROATE SODIUM) [Concomitant]
  3. INDOMETACIN (INDOMETACIN) [Concomitant]
  4. LORATADINE (LORATADINE) (LORATADINE) [Concomitant]
  5. PREGABALIN (PREGABALIN) [Concomitant]
  6. SODIUM (VALPROATE (VALPROATE SODIUM) [Concomitant]

REACTIONS (2)
  - Hypersensitivity vasculitis [None]
  - Vasculitic rash [None]
